FAERS Safety Report 11224219 (Version 1)
Quarter: 2015Q2

REPORT INFORMATION
  Report Type: Spontaneous
  Country: BR (occurrence: None)
  Receive Date: 20150625
  Receipt Date: 20150625
  Transmission Date: 20150821
  Serious: Yes (Hospitalization)
  Sender: FDA-Public Use
  Company Number: IPC201506-000397

PATIENT
  Age: 41 Year
  Sex: Female

DRUGS (3)
  1. DOCETAXEL. [Concomitant]
     Active Substance: DOCETAXEL
  2. GEMCITABINE [Suspect]
     Active Substance: GEMCITABINE\GEMCITABINE HYDROCHLORIDE
     Indication: PALLIATIVE CARE
  3. WARFARIN [Suspect]
     Active Substance: WARFARIN
     Route: 048

REACTIONS (9)
  - Drug interaction [None]
  - Dizziness [None]
  - Gastric disorder [None]
  - Blood pressure decreased [None]
  - International normalised ratio increased [None]
  - Sinus tachycardia [None]
  - Haemoglobin decreased [None]
  - Blood creatinine increased [None]
  - Haematoma [None]
